FAERS Safety Report 7626596-4 (Version None)
Quarter: 2011Q3

REPORT INFORMATION
  Report Type: 
  Country: None (occurrence: None)
  Receive Date: 20110721
  Receipt Date: 20110712
  Transmission Date: 20111222
  Serious: Yes (Other)
  Sender: FDA-Public Use
  Company Number: IN-GLAXOSMITHKLINE-B0734123A

PATIENT
  Age: 26 Year
  Sex: Male

DRUGS (2)
  1. LITHIUM CARBONATE [Concomitant]
     Dosage: 900MG PER DAY
  2. BUPROPION HCL [Suspect]
     Indication: BIPOLAR I DISORDER
     Dosage: 300MG PER DAY
     Route: 065

REACTIONS (5)
  - DISTRACTIBILITY [None]
  - MANIA [None]
  - SPEECH DISORDER [None]
  - IRRITABILITY [None]
  - AGITATION [None]
